FAERS Safety Report 7437567-5 (Version None)
Quarter: 2011Q2

REPORT INFORMATION
  Report Type: 
  Country: None (occurrence: None)
  Receive Date: 20110426
  Receipt Date: 20110414
  Transmission Date: 20111010
  Serious: Yes (Hospitalization)
  Sender: FDA-Public Use
  Company Number: US-ELI_LILLY_AND_COMPANY-US201012000538

PATIENT
  Sex: Female
  Weight: 83.9 kg

DRUGS (28)
  1. VERAPAMIL [Concomitant]
     Dosage: 80 MG, DAILY (1/D)
     Route: 065
  2. LEVOCETIRIZINE DIHYDROCHLORIDE [Concomitant]
     Indication: HYPERSENSITIVITY
     Dosage: 5 MG, DAILY (1/D)
     Route: 065
  3. ECONAZOLE NITRATE [Concomitant]
  4. XYZAL [Concomitant]
  5. FORTEO [Suspect]
     Dosage: 20 UG, QD
     Route: 058
  6. ASPIRIN [Concomitant]
     Dosage: 325 UNK, DAILY (1/D)
     Route: 065
  7. NASONEX [Concomitant]
     Dosage: UNK, AS NEEDED
     Route: 065
  8. SOOTHE XP [Concomitant]
     Dosage: UNK, AS NEEDED
     Route: 065
  9. PROVENTIL /USA/ [Concomitant]
     Dosage: UNK, AS NEEDED
     Route: 065
  10. CALCIUM [Concomitant]
  11. TESSALON [Concomitant]
  12. PROTONIX [Concomitant]
  13. LEVOTHROID [Concomitant]
  14. VITAMIN D [Concomitant]
  15. NITROGLYCERIN [Concomitant]
     Dosage: 4 MG, AS NEEDED
     Route: 065
  16. BENZONATATE [Concomitant]
     Dosage: 100 MG, AS NEEDED
     Route: 065
  17. PRAZOSIN HYDROCHLORIDE [Concomitant]
  18. ALAWAY [Concomitant]
     Dosage: UNK, AS NEEDED
     Route: 065
  19. LASIX [Concomitant]
  20. LIPITOR [Concomitant]
     Dosage: 10 MG, DAILY (1/D)
     Route: 065
  21. FUROSEMIDE [Concomitant]
     Dosage: 40 MG, DAILY (1/D)
     Route: 065
  22. VITAMIN B-12 [Concomitant]
     Dosage: UNK, MONTHLY (1/M)
     Route: 065
  23. POTASSIUM [Concomitant]
  24. FORTEO [Suspect]
     Indication: OSTEOPOROSIS
     Dosage: 20 UG, DAILY (1/D)
     Route: 058
     Dates: start: 20101101
  25. METFORMIN [Concomitant]
     Dosage: 500 MG, 2/D
     Route: 065
  26. PANTOPRAZOLE [Concomitant]
     Dosage: 40 MG, DAILY (1/D)
     Route: 065
  27. KLOR-CON M [Concomitant]
     Dosage: 10 UNK, 2/D
     Route: 065
  28. ADVAIR DISKUS 100/50 [Concomitant]
     Dosage: 250/50 UNK, 2/D
     Route: 065

REACTIONS (5)
  - HYPOGLYCAEMIA [None]
  - DIABETES MELLITUS [None]
  - BRONCHITIS CHRONIC [None]
  - HEART VALVE INCOMPETENCE [None]
  - MUSCLE SPASMS [None]
